FAERS Safety Report 26114308 (Version 1)
Quarter: 2025Q4

REPORT INFORMATION
  Report Type: Spontaneous
  Country: CN (occurrence: CN)
  Receive Date: 20251202
  Receipt Date: 20251202
  Transmission Date: 20260118
  Serious: Yes (Other)
  Sender: ELI LILLY AND COMPANY
  Company Number: CN-ELI_LILLY_AND_COMPANY-CN202511034356

PATIENT
  Age: 69 Year
  Sex: Male
  Weight: 53.9 kg

DRUGS (5)
  1. PEMETREXED [Suspect]
     Active Substance: PEMETREXED
     Indication: Lung neoplasm malignant
     Dosage: 700 MG, CYCLICAL (ONCE EVERY 21 DAYS )
     Route: 041
  2. PEMETREXED [Suspect]
     Active Substance: PEMETREXED
     Dosage: 700 MG, CYCLICAL (ONCE EVERY 21 DAYS )
     Route: 041
     Dates: start: 20250801, end: 20251101
  3. SINTILIMAB [Suspect]
     Active Substance: SINTILIMAB
     Indication: Lung neoplasm malignant
     Dosage: 200 MG, CYCLICAL (ONCE EVERY 21 DAYS)
     Route: 041
  4. SINTILIMAB [Suspect]
     Active Substance: SINTILIMAB
     Dosage: 200 MG, CYCLICAL (ONCE EVERY 21 DAYS)
     Route: 041
     Dates: start: 20250801, end: 20251101
  5. SODIUM CHLORIDE [Concomitant]
     Active Substance: SODIUM CHLORIDE
     Indication: Product used for unknown indication
     Dosage: 100 ML, OTHER (TWICE EVERY 21 DAYS, VIA PERFUSION)
     Dates: start: 20250801, end: 20251101

REACTIONS (4)
  - Drug-induced liver injury [Recovering/Resolving]
  - Jaundice [Recovering/Resolving]
  - Immune-mediated hepatic disorder [Recovering/Resolving]
  - Blood creatinine increased [Recovering/Resolving]

NARRATIVE: CASE EVENT DATE: 20251115
